FAERS Safety Report 19905467 (Version 1)
Quarter: 2021Q4

REPORT INFORMATION
  Report Type: Spontaneous
  Country: CN (occurrence: CN)
  Receive Date: 20211001
  Receipt Date: 20211001
  Transmission Date: 20220304
  Serious: Yes (Life-Threatening)
  Sender: FDA-Public Use
  Company Number: CN-NAPPMUNDI-GBR-2021-0090949

PATIENT
  Age: 57 Year
  Sex: Male

DRUGS (1)
  1. MS CONTIN [Suspect]
     Active Substance: MORPHINE SULFATE
     Indication: Analgesic therapy
     Dosage: 30 MG, Q12H
     Route: 048
     Dates: start: 20210908, end: 20210913

REACTIONS (4)
  - Sedation complication [Recovering/Resolving]
  - Pupillary reflex impaired [Recovering/Resolving]
  - Respiratory depression [Recovering/Resolving]
  - Confusional state [Recovering/Resolving]

NARRATIVE: CASE EVENT DATE: 20210913
